FAERS Safety Report 18355342 (Version 1)
Quarter: 2020Q4

REPORT INFORMATION
  Report Type: Spontaneous
  Country: US (occurrence: US)
  Receive Date: 20201006
  Receipt Date: 20201006
  Transmission Date: 20210114
  Serious: No
  Sender: FDA-Public Use
  Company Number: None

PATIENT
  Age: 69 Year
  Sex: Male

DRUGS (1)
  1. DARBEPOETIN ALFA, RECOMBINANT DARBEPOETIN ALFA, RECOMBINANT 40MCG/0.4M [Suspect]
     Active Substance: DARBEPOETIN ALFA
     Indication: ANAEMIA
     Dates: start: 20200911, end: 20200924

REACTIONS (1)
  - Rash [None]

NARRATIVE: CASE EVENT DATE: 20200924
